FAERS Safety Report 9430564 (Version 1)
Quarter: 2013Q3

REPORT INFORMATION
  Report Type: Spontaneous
  Country: CZ (occurrence: None)
  Receive Date: 20130726
  Receipt Date: 20130726
  Transmission Date: 20140515
  Serious: Yes (Hospitalization, Other)
  Sender: FDA-Public Use
  Company Number: 2013AP006813

PATIENT
  Age: 79 Year
  Sex: Female

DRUGS (1)
  1. ALENDRONIC ACID (ALENDRONIC ACID) [Suspect]
     Indication: OSTEOPOROSIS
     Route: 048

REACTIONS (4)
  - Osteonecrosis [None]
  - Otorrhoea [None]
  - Ear pain [None]
  - Otitis externa [None]
